FAERS Safety Report 7747826-4 (Version None)
Quarter: 2011Q3

REPORT INFORMATION
  Report Type: 
  Country: None (occurrence: None)
  Receive Date: 20110913
  Receipt Date: 20110902
  Transmission Date: 20111222
  Serious: No
  Sender: FDA-Public Use
  Company Number: US-JNJFOC-20110903864

PATIENT
  Sex: Female

DRUGS (5)
  1. RESTORIL [Suspect]
     Indication: SLEEP DISORDER
     Route: 048
  2. SANDOZ FENTANYL TRANSDERMAL SYSTEM [Suspect]
     Indication: ARTHRITIS
     Dosage: NDC NUMBER: 0781724055
     Route: 062
     Dates: start: 20110801
  3. SANDOZ FENTANYL TRANSDERMAL SYSTEM [Suspect]
     Indication: INTERVERTEBRAL DISC PROTRUSION
     Dosage: NDC NUMBER: 0781724055
     Route: 062
     Dates: start: 20110801
  4. CELEBREX [Concomitant]
     Indication: ARTHRITIS
  5. SANDOZ FENTANYL TRANSDERMAL SYSTEM [Suspect]
     Indication: SPINAL COLUMN STENOSIS
     Dosage: NDC NUMBER: 0781724055
     Route: 062
     Dates: start: 20110801

REACTIONS (3)
  - DIZZINESS [None]
  - WRONG TECHNIQUE IN DRUG USAGE PROCESS [None]
  - DRUG INEFFECTIVE [None]
